FAERS Safety Report 8237048-5 (Version None)
Quarter: 2012Q1

REPORT INFORMATION
  Report Type: 
  Country: None (occurrence: None)
  Receive Date: 20120327
  Receipt Date: 20120326
  Transmission Date: 20120608
  Serious: Yes (Death, Other)
  Sender: FDA-Public Use
  Company Number: PHHY2012JP021902

PATIENT

DRUGS (2)
  1. ZOMETA [Suspect]
     Indication: METASTASES TO BONE
  2. AREDIA [Suspect]
     Indication: METASTASES TO BONE

REACTIONS (5)
  - NEOPLASM PROGRESSION [None]
  - OSTEONECROSIS OF JAW [None]
  - BONE PAIN [None]
  - NEOPLASM MALIGNANT [None]
  - PERIODONTITIS [None]
